FAERS Safety Report 24556998 (Version 2)
Quarter: 2024Q4

REPORT INFORMATION
  Report Type: Spontaneous
  Country: FR (occurrence: FR)
  Receive Date: 20241028
  Receipt Date: 20241106
  Transmission Date: 20250115
  Serious: Yes (Other)
  Sender: AUROBINDO
  Company Number: FR-MLMSERVICE-20241007-PI220101-00320-1

PATIENT
  Age: 10 Year
  Sex: Male

DRUGS (1)
  1. TOPIRAMATE [Suspect]
     Active Substance: TOPIRAMATE
     Indication: Product used for unknown indication
     Dosage: 700 MILLIGRAM
     Route: 065

REACTIONS (8)
  - Suicide attempt [Recovered/Resolved]
  - Seizure [Recovered/Resolved]
  - Toxic encephalopathy [Recovered/Resolved]
  - Metabolic acidosis [Recovered/Resolved]
  - Status epilepticus [Recovered/Resolved]
  - Confusional state [Recovered/Resolved]
  - Intentional overdose [Recovered/Resolved]
  - Prescription drug used without a prescription [Recovered/Resolved]
